FAERS Safety Report 12086888 (Version 1)
Quarter: 2016Q1

REPORT INFORMATION
  Report Type: Spontaneous
  Country: None (occurrence: US)
  Receive Date: 20160217
  Receipt Date: 20160217
  Transmission Date: 20160526
  Serious: No
  Sender: FDA-Public Use
  Company Number: US-ALLERGAN-1509118US

PATIENT
  Sex: Female

DRUGS (2)
  1. GENTEAL GELDROPS [Concomitant]
     Indication: DRY EYE
     Route: 047
  2. RESTASIS [Suspect]
     Active Substance: CYCLOSPORINE
     Indication: DRY EYE
     Dosage: 2 GTT, Q12H
     Route: 047
     Dates: start: 2010

REACTIONS (2)
  - Dry eye [Not Recovered/Not Resolved]
  - Punctal plug insertion [Unknown]

NARRATIVE: CASE EVENT DATE: 20150508
